FAERS Safety Report 4840461-7 (Version None)
Quarter: 2005Q4

REPORT INFORMATION
  Report Type: 
  Country: None (occurrence: None)
  Receive Date: 20051129
  Receipt Date: 20051129
  Transmission Date: 20060501
  Serious: Yes (Other)
  Sender: FDA-Public Use
  Company Number: None

PATIENT
  Age: 75 Year
  Sex: Female
  Weight: 86.1834 kg

DRUGS (1)
  1. ACTONEL [Suspect]
     Indication: BONE DENSITY DECREASED
     Dosage: 35MG  ONCE A WEEK
     Dates: start: 20051117, end: 20051124

REACTIONS (7)
  - ABDOMINAL PAIN UPPER [None]
  - ASTHMA [None]
  - BACK PAIN [None]
  - COUGH [None]
  - DIARRHOEA [None]
  - GASTROOESOPHAGEAL REFLUX DISEASE [None]
  - URINARY INCONTINENCE [None]
